FAERS Safety Report 15502256 (Version 1)
Quarter: 2018Q4

REPORT INFORMATION
  Report Type: Spontaneous
  Country: US (occurrence: US)
  Receive Date: 20181015
  Receipt Date: 20181015
  Transmission Date: 20190205
  Serious: No
  Sender: FDA-Public Use
  Company Number: US-AMGEN INC.-USASP2018118676

PATIENT
  Sex: Male

DRUGS (1)
  1. AIMOVIG [Suspect]
     Active Substance: ERENUMAB-AOOE
     Indication: MIGRAINE
     Dosage: 140 MG, QMO
     Route: 058
     Dates: start: 201808, end: 201808

REACTIONS (3)
  - Vomiting [Recovering/Resolving]
  - Headache [Recovering/Resolving]
  - Periorbital swelling [Recovering/Resolving]

NARRATIVE: CASE EVENT DATE: 201808
